FAERS Safety Report 10049751 (Version 11)
Quarter: 2016Q4

REPORT INFORMATION
  Report Type: Report from Study
  Country: JP (occurrence: JP)
  Receive Date: 20140401
  Receipt Date: 20161118
  Transmission Date: 20170206
  Serious: Yes (Life-Threatening, Hospitalization, Disabling, Other)
  Sender: FDA-Public Use
  Company Number: JP-ASTELLAS-2014JP002814

PATIENT
  Age: 62 Year
  Sex: Female
  Weight: 65 kg

DRUGS (85)
  1. TACROLIMUS. [Suspect]
     Active Substance: TACROLIMUS
     Indication: LUPUS NEPHRITIS
     Route: 048
     Dates: start: 20071012
  2. PURSENIDE [Concomitant]
     Active Substance: SENNOSIDES A AND B
     Indication: PRODUCT USED FOR UNKNOWN INDICATION
     Route: 048
     Dates: end: 20130808
  3. JUVELA N [Concomitant]
     Active Substance: TOCOPHERYL NICOTINATE, D-.ALPHA.
     Indication: PRODUCT USED FOR UNKNOWN INDICATION
     Route: 048
     Dates: end: 20130904
  4. FOSAMAC [Concomitant]
     Active Substance: ALENDRONATE SODIUM
     Indication: PROPHYLAXIS
     Dosage: UNK UNK, UNKNOWN FREQ.
     Route: 048
     Dates: end: 20071201
  5. FOSAMAC [Concomitant]
     Active Substance: ALENDRONATE SODIUM
     Route: 048
     Dates: end: 20130904
  6. AZACTAM [Concomitant]
     Active Substance: AZTREONAM
     Route: 065
     Dates: start: 20130922, end: 20130928
  7. CLIDAMACIN [Concomitant]
     Active Substance: CLINDAMYCIN
     Indication: PANCREATITIS
     Route: 065
     Dates: start: 20130801, end: 20130803
  8. VANCOMYCIN [Concomitant]
     Active Substance: VANCOMYCIN
     Route: 065
     Dates: start: 20130822, end: 20130902
  9. ARTIST [Concomitant]
     Active Substance: CARVEDILOL
     Indication: AORTIC DISSECTION
     Route: 048
     Dates: start: 20130816, end: 20130911
  10. MAGMITT [Concomitant]
     Active Substance: MAGNESIUM OXIDE
     Indication: CONSTIPATION PROPHYLAXIS
     Route: 048
     Dates: start: 20130921, end: 20140823
  11. ONOACT [Concomitant]
     Active Substance: LANDIOLOL HYDROCHLORIDE
     Indication: BLOOD PRESSURE DECREASED
     Route: 065
     Dates: start: 20130818, end: 20130818
  12. WYPAX [Concomitant]
     Active Substance: LORAZEPAM
     Indication: PRODUCT USED FOR UNKNOWN INDICATION
     Route: 048
  13. ROCALTROL [Concomitant]
     Active Substance: CALCITRIOL
     Indication: PROPHYLAXIS
     Dosage: 0.5 ?G, ONCE DAILY
     Route: 048
  14. VANCOMYCIN [Concomitant]
     Active Substance: VANCOMYCIN
     Indication: AORTIC DISSECTION
     Route: 065
     Dates: start: 20130816, end: 20130816
  15. ELASPOL [Concomitant]
     Active Substance: SIVELESTAT SODIUM
     Indication: AORTIC DISSECTION
     Route: 065
     Dates: start: 20130816, end: 20130824
  16. WARFARIN [Concomitant]
     Active Substance: WARFARIN
     Route: 048
     Dates: start: 20131008, end: 20131201
  17. HERBESSER [Concomitant]
     Active Substance: DILTIAZEM HYDROCHLORIDE
     Indication: HYPERTENSION
     Dosage: UNK UNK, UNKNOWN FREQ.
     Route: 048
     Dates: end: 20140325
  18. ZOLPIDEM TARTRATE. [Concomitant]
     Active Substance: ZOLPIDEM TARTRATE
     Indication: INSOMNIA
     Route: 048
     Dates: start: 20141018
  19. CRAVIT [Concomitant]
     Active Substance: LEVOFLOXACIN
     Indication: CYSTITIS
     Route: 048
     Dates: start: 20150108, end: 20150204
  20. NEOSYNESIN                         /00116302/ [Concomitant]
     Indication: BLOOD PRESSURE DECREASED
     Route: 065
     Dates: start: 20130818
  21. CELECOX [Concomitant]
     Active Substance: CELECOXIB
     Indication: PRODUCT USED FOR UNKNOWN INDICATION
     Route: 048
     Dates: start: 20071201, end: 20121128
  22. MYSLEE [Concomitant]
     Active Substance: ZOLPIDEM TARTRATE
     Indication: INSOMNIA
     Route: 048
     Dates: end: 20141017
  23. PREDNISOLONE. [Concomitant]
     Active Substance: PREDNISOLONE
     Route: 048
     Dates: start: 20100216, end: 20110720
  24. ROHYPNOL [Concomitant]
     Active Substance: FLUNITRAZEPAM
     Indication: PRODUCT USED FOR UNKNOWN INDICATION
     Route: 048
  25. LOXONIN [Concomitant]
     Active Substance: LOXOPROFEN SODIUM
     Indication: PRODUCT USED FOR UNKNOWN INDICATION
     Route: 048
     Dates: start: 20050526, end: 20071201
  26. LOXONIN [Concomitant]
     Active Substance: LOXOPROFEN SODIUM
     Route: 048
     Dates: start: 20120308, end: 20141017
  27. CALCIUM LACTATE [Concomitant]
     Active Substance: CALCIUM LACTATE
     Indication: PROPHYLAXIS
     Route: 048
  28. FERROUS SULFATE. [Concomitant]
     Active Substance: FERROUS SULFATE
     Indication: PRODUCT USED FOR UNKNOWN INDICATION
     Dosage: UNK UNK, UNKNOWN FREQ.
     Route: 048
     Dates: end: 20080321
  29. ASPARA POTASSIUM [Concomitant]
     Active Substance: POTASSIUM ASPARTATE
     Route: 048
     Dates: start: 20130817, end: 20130819
  30. SERENACE [Concomitant]
     Active Substance: HALOPERIDOL
     Indication: INSOMNIA
  31. PYRINAZIN [Concomitant]
     Active Substance: ACETAMINOPHEN
     Indication: PRODUCT USED FOR UNKNOWN INDICATION
     Dosage: 0.5 MG, ONCE DAILY
     Route: 048
     Dates: start: 20130726, end: 20130726
  32. ARTIST [Concomitant]
     Active Substance: CARVEDILOL
     Indication: PROPHYLAXIS
     Route: 048
     Dates: start: 20130912
  33. HERBESSER [Concomitant]
     Active Substance: DILTIAZEM HYDROCHLORIDE
     Indication: CHEST DISCOMFORT
     Route: 048
     Dates: start: 20140326
  34. LANDIOLOL HYDROCHLORIDE [Concomitant]
     Active Substance: LANDIOLOL HYDROCHLORIDE
     Indication: BLOOD PRESSURE DECREASED
     Route: 065
     Dates: start: 20130818, end: 20130818
  35. PARIET [Concomitant]
     Active Substance: RABEPRAZOLE SODIUM
     Indication: PROPHYLAXIS
     Route: 048
     Dates: end: 20140915
  36. BAYASPIRIN [Concomitant]
     Active Substance: ASPIRIN
     Indication: DEEP VEIN THROMBOSIS
     Dosage: UNK UNK, UNKNOWN FREQ.
     Route: 048
     Dates: start: 20071201
  37. AZACTAM [Concomitant]
     Active Substance: AZTREONAM
     Indication: PANCREATITIS
     Route: 065
     Dates: start: 20130727, end: 20130731
  38. ADALAT [Concomitant]
     Active Substance: NIFEDIPINE
     Indication: HYPERTENSION
     Route: 048
     Dates: start: 20130726, end: 20130819
  39. OMEPRAL                            /00661202/ [Concomitant]
     Indication: PRODUCT USED FOR UNKNOWN INDICATION
     Route: 065
     Dates: start: 20130730, end: 20130731
  40. PENTAZOCINE [Concomitant]
     Active Substance: PENTAZOCINE
     Route: 065
     Dates: start: 20130822, end: 20130823
  41. WARFARIN [Concomitant]
     Active Substance: WARFARIN
     Indication: PROPHYLAXIS
     Route: 048
     Dates: start: 20130923, end: 20130927
  42. CAPROCIN [Concomitant]
     Indication: AORTIC DISSECTION
     Route: 065
     Dates: start: 20130921, end: 20131003
  43. SERENACE [Concomitant]
     Active Substance: HALOPERIDOL
     Indication: PROPHYLAXIS
     Route: 065
     Dates: start: 20130820, end: 20130822
  44. NOREPINEPHRINE [Concomitant]
     Active Substance: NOREPINEPHRINE\NOREPINEPHRINE BITARTRATE
     Indication: BLOOD PRESSURE DECREASED
     Route: 065
     Dates: start: 20130818, end: 20130818
  45. PREDNISOLONE. [Concomitant]
     Active Substance: PREDNISOLONE
     Route: 048
     Dates: start: 20081031, end: 20100215
  46. DORNER [Concomitant]
     Active Substance: BERAPROST SODIUM
     Indication: PRODUCT USED FOR UNKNOWN INDICATION
     Route: 048
     Dates: end: 20130904
  47. BAYASPIRIN [Concomitant]
     Active Substance: ASPIRIN
     Route: 048
     Dates: end: 20130904
  48. FERROMIA                           /00023516/ [Concomitant]
     Active Substance: FERROUS CITRATE
     Indication: PRODUCT USED FOR UNKNOWN INDICATION
     Route: 048
     Dates: start: 20130221, end: 20130710
  49. AZACTAM [Concomitant]
     Active Substance: AZTREONAM
     Indication: CHOLANGITIS ACUTE
     Route: 065
     Dates: start: 20130725, end: 20130726
  50. AZACTAM [Concomitant]
     Active Substance: AZTREONAM
     Indication: CHOLECYSTITIS
     Route: 065
     Dates: start: 20130801, end: 20130803
  51. SERENACE [Concomitant]
     Active Substance: HALOPERIDOL
     Indication: PROPHYLAXIS
     Dosage: 0.75 MG, AS NEEDED
     Route: 048
     Dates: start: 20130726, end: 20130730
  52. PENTAZOCINE [Concomitant]
     Active Substance: PENTAZOCINE
     Indication: PRODUCT USED FOR UNKNOWN INDICATION
     Route: 065
     Dates: start: 20130730, end: 20130730
  53. WARFARIN [Concomitant]
     Active Substance: WARFARIN
     Route: 048
     Dates: start: 20131001, end: 20131007
  54. SERENACE [Concomitant]
     Active Substance: HALOPERIDOL
     Indication: INSOMNIA
  55. NOREPINEPHRINE [Concomitant]
     Active Substance: NOREPINEPHRINE\NOREPINEPHRINE BITARTRATE
     Indication: PARAPLEGIA
  56. PREDNISOLONE. [Concomitant]
     Active Substance: PREDNISOLONE
     Route: 048
     Dates: start: 20110721, end: 20130807
  57. PREDNISOLONE. [Concomitant]
     Active Substance: PREDNISOLONE
     Route: 048
     Dates: start: 20150723
  58. PREDNISOLONE SODIUM SUCCINATE [Concomitant]
     Active Substance: PREDNISOLONE SODIUM SUCCINATE
     Route: 042
     Dates: start: 20130819, end: 20130819
  59. ASPARA POTASSIUM [Concomitant]
     Active Substance: POTASSIUM ASPARTATE
     Route: 048
     Dates: start: 20130820
  60. AZACTAM [Concomitant]
     Active Substance: AZTREONAM
     Indication: URINARY TRACT INFECTION
     Route: 065
     Dates: start: 20130920, end: 20130921
  61. CLIDAMACIN [Concomitant]
     Active Substance: CLINDAMYCIN
     Indication: CHOLANGITIS ACUTE
     Route: 065
     Dates: start: 20130725, end: 20130731
  62. PYRINAZIN [Concomitant]
     Active Substance: ACETAMINOPHEN
     Dosage: 0.5 MG, ONCE DAILY
     Route: 048
     Dates: start: 20130817, end: 20130819
  63. ATARAX-P                           /00058402/ [Concomitant]
     Active Substance: HYDROXYZINE HYDROCHLORIDE
     Indication: PROPHYLAXIS OF NAUSEA AND VOMITING
     Route: 065
     Dates: start: 20130730, end: 20130730
  64. PENTAZOCINE [Concomitant]
     Active Substance: PENTAZOCINE
     Route: 065
     Dates: start: 20130817, end: 20130818
  65. WARFARIN [Concomitant]
     Active Substance: WARFARIN
     Route: 048
     Dates: start: 20131202
  66. ONOACT [Concomitant]
     Active Substance: LANDIOLOL HYDROCHLORIDE
     Indication: PARAPLEGIA
  67. MEROPEN                            /01250501/ [Concomitant]
     Active Substance: MEROPENEM
     Indication: PYELONEPHRITIS
     Route: 041
     Dates: start: 20140414, end: 20140823
  68. PREDNISOLONE. [Concomitant]
     Active Substance: PREDNISOLONE
     Indication: LUPUS NEPHRITIS
     Route: 048
     Dates: end: 20081030
  69. PREDNISOLONE SODIUM SUCCINATE [Concomitant]
     Active Substance: PREDNISOLONE SODIUM SUCCINATE
     Indication: LUPUS NEPHRITIS
     Route: 042
     Dates: start: 20130816, end: 20130816
  70. WARFARIN [Concomitant]
     Active Substance: WARFARIN
     Indication: DEEP VEIN THROMBOSIS
     Dosage: UNK UNK, UNKNOWN FREQ.
     Route: 048
     Dates: start: 20061219, end: 20071130
  71. WARFARIN [Concomitant]
     Active Substance: WARFARIN
     Route: 048
     Dates: start: 20130928, end: 20130930
  72. NEXIUM [Concomitant]
     Active Substance: ESOMEPRAZOLE MAGNESIUM
     Indication: PROPHYLAXIS
     Route: 048
     Dates: start: 20140421
  73. LOPEMIN                            /00384302/ [Concomitant]
     Active Substance: LOPERAMIDE HYDROCHLORIDE
     Indication: PROPHYLAXIS AGAINST DIARRHOEA
     Dosage: UNK UNK, UNKNOWN FREQ.
     Route: 048
     Dates: start: 20141018
  74. PREDNISOLONE. [Concomitant]
     Active Substance: PREDNISOLONE
     Route: 048
     Dates: start: 20130820, end: 20150722
  75. ASPARA POTASSIUM [Concomitant]
     Active Substance: POTASSIUM ASPARTATE
     Indication: PROPHYLAXIS
     Route: 048
     Dates: start: 20130321, end: 20130616
  76. AZACTAM [Concomitant]
     Active Substance: AZTREONAM
     Route: 065
     Dates: start: 20130929, end: 20131024
  77. CLIDAMACIN [Concomitant]
     Active Substance: CLINDAMYCIN
     Indication: CHOLECYSTITIS
  78. ATARAX-P                           /00058402/ [Concomitant]
     Active Substance: HYDROXYZINE HYDROCHLORIDE
     Route: 065
     Dates: start: 20130819, end: 20130819
  79. TAKEPRON [Concomitant]
     Active Substance: LANSOPRAZOLE
     Indication: AORTIC DISSECTION
     Route: 065
     Dates: start: 20130816, end: 20130816
  80. MINOCYCLINE [Concomitant]
     Active Substance: MINOCYCLINE\MINOCYCLINE HYDROCHLORIDE
     Indication: AORTIC DISSECTION
     Route: 065
     Dates: start: 20130816, end: 20130816
  81. VANCOMYCIN [Concomitant]
     Active Substance: VANCOMYCIN
     Route: 065
     Dates: start: 20130817, end: 20130820
  82. HEPARIN CALCIUM [Concomitant]
     Active Substance: HEPARIN CALCIUM
     Indication: AORTIC DISSECTION
     Route: 065
     Dates: start: 20130818, end: 20130927
  83. WARFARIN [Concomitant]
     Active Substance: WARFARIN
     Indication: AORTIC DISSECTION
     Route: 048
     Dates: start: 20130921, end: 20130922
  84. ROPION [Concomitant]
     Active Substance: FLURBIPROFEN AXETIL
     Indication: THERMAL BURN
     Route: 042
     Dates: start: 20140421, end: 20140823
  85. LOXOPROFEN SODIUM [Concomitant]
     Active Substance: LOXOPROFEN SODIUM
     Indication: PRODUCT USED FOR UNKNOWN INDICATION
     Route: 048
     Dates: start: 20141018

REACTIONS (13)
  - Chest discomfort [Recovering/Resolving]
  - Thermal burn [Not Recovered/Not Resolved]
  - Pyelonephritis [Recovered/Resolved]
  - Bile duct stone [Recovered/Resolved]
  - Cystitis [Recovering/Resolving]
  - Iron deficiency anaemia [Not Recovered/Not Resolved]
  - Cholecystitis [Recovered/Resolved]
  - Pancreatitis [Recovered/Resolved]
  - Aortic dissection [Recovering/Resolving]
  - Urinary tract infection [Recovering/Resolving]
  - Cholangitis acute [Recovered/Resolved]
  - Blood pressure decreased [Recovered/Resolved]
  - Paraplegia [Recovered/Resolved with Sequelae]

NARRATIVE: CASE EVENT DATE: 20130710
